FAERS Safety Report 14368944 (Version 1)
Quarter: 2018Q1

REPORT INFORMATION
  Report Type: Spontaneous
  Country: US (occurrence: US)
  Receive Date: 20180109
  Receipt Date: 20180109
  Transmission Date: 20180509
  Serious: No
  Sender: FDA-Public Use
  Company Number: US-DRREDDYS-USA/USA/17/0087791

PATIENT
  Age: 73 Year
  Sex: Female
  Weight: 56.69 kg

DRUGS (3)
  1. HABITROL [Suspect]
     Active Substance: NICOTINE
     Route: 061
  2. HABITROL [Suspect]
     Active Substance: NICOTINE
     Route: 061
  3. HABITROL [Suspect]
     Active Substance: NICOTINE
     Indication: SMOKING CESSATION THERAPY
     Route: 061

REACTIONS (5)
  - Product quality issue [Unknown]
  - Overdose [Unknown]
  - Nicotine dependence [Unknown]
  - Drug ineffective [Unknown]
  - Treatment noncompliance [Unknown]
